FAERS Safety Report 21582213 (Version 1)
Quarter: 2022Q4

REPORT INFORMATION
  Report Type: Spontaneous
  Country: US (occurrence: US)
  Receive Date: 20221111
  Receipt Date: 20221111
  Transmission Date: 20230112
  Serious: No
  Sender: FDA-Public Use
  Company Number: US-TAKEDA-2022TUS081361

PATIENT
  Sex: Female

DRUGS (1)
  1. DEXTROAMPHET SACCHARAT, AMPHET ASPARTATE, DEXTROAMPHET SULFATE AND AMP [Suspect]
     Active Substance: AMPHETAMINE ASPARTATE\AMPHETAMINE SULFATE\DEXTROAMPHETAMINE SACCHARATE\DEXTROAMPHETAMINE SULFATE
     Indication: Product used for unknown indication
     Dosage: UNK
     Route: 065

REACTIONS (10)
  - Insomnia [Unknown]
  - Disturbance in attention [Unknown]
  - Blepharospasm [Unknown]
  - Fatigue [Unknown]
  - Apathy [Unknown]
  - Headache [Unknown]
  - Increased appetite [Unknown]
  - Depression [Unknown]
  - Product quality issue [Unknown]
  - Product availability issue [Unknown]
